FAERS Safety Report 4579244-4 (Version None)
Quarter: 2005Q1

REPORT INFORMATION
  Report Type: 
  Country: None (occurrence: None)
  Receive Date: 20050208
  Receipt Date: 20050208
  Transmission Date: 20050727
  Serious: No
  Sender: FDA-Public Use
  Company Number: None

PATIENT
  Age: 81 Year
  Sex: Female
  Weight: 62.5964 kg

DRUGS (1)
  1. OMEPRAZOLE [Suspect]
     Dosage: TAKE 1 CAPSULE EVERY MORNING FOR ACID REFLUX

REACTIONS (3)
  - DISEASE RECURRENCE [None]
  - ERUCTATION [None]
  - PHARMACEUTICAL PRODUCT COMPLAINT [None]
